FAERS Safety Report 18305099 (Version 1)
Quarter: 2020Q3

REPORT INFORMATION
  Report Type: Spontaneous
  Country: RU (occurrence: RU)
  Receive Date: 20200924
  Receipt Date: 20200924
  Transmission Date: 20201103
  Serious: Yes (Other)
  Sender: FDA-Public Use
  Company Number: NVSC2020RU259326

PATIENT
  Age: 59 Year
  Sex: Female

DRUGS (2)
  1. TRAMETINIB [Suspect]
     Active Substance: TRAMETINIB
     Indication: VULVAL CANCER
     Dosage: 2 MG, QD
     Route: 065
  2. DABRAFENIB [Suspect]
     Active Substance: DABRAFENIB
     Indication: VULVAL CANCER
     Dosage: 150 MG, BID
     Route: 065

REACTIONS (7)
  - Palmar-plantar erythrodysaesthesia syndrome [Unknown]
  - Alopecia [Unknown]
  - Hyperkeratosis [Unknown]
  - Pyrexia [Unknown]
  - Asthenia [Unknown]
  - Skin toxicity [Unknown]
  - Squamous cell carcinoma [Unknown]
